FAERS Safety Report 19477888 (Version 1)
Quarter: 2021Q2

REPORT INFORMATION
  Report Type: Spontaneous
  Country: US (occurrence: US)
  Receive Date: 20210630
  Receipt Date: 20210630
  Transmission Date: 20210717
  Serious: No
  Sender: FDA-Public Use
  Company Number: US-NEOS THERAPEUTICS, LP-2020NEO00046

PATIENT
  Sex: Male
  Weight: 47.99 kg

DRUGS (3)
  1. COTEMPLA XR?ODT [Suspect]
     Active Substance: METHYLPHENIDATE
     Indication: ATTENTION DEFICIT HYPERACTIVITY DISORDER
     Dosage: UNK
     Route: 048
     Dates: start: 20180126, end: 202003
  2. COTEMPLA XR?ODT [Suspect]
     Active Substance: METHYLPHENIDATE
     Dosage: 12.95 MG (HALF A TABLET), 1X/DAY
     Route: 048
     Dates: start: 2020
  3. TRETINOIN. [Concomitant]
     Active Substance: TRETINOIN
     Route: 061

REACTIONS (3)
  - Excessive eye blinking [Not Recovered/Not Resolved]
  - Staring [Not Recovered/Not Resolved]
  - Wrong technique in product usage process [Not Recovered/Not Resolved]

NARRATIVE: CASE EVENT DATE: 2020
